FAERS Safety Report 8508482 (Version 2)
Quarter: 2014Q2

REPORT INFORMATION
  Report Type: Spontaneous
  Country: US (occurrence: US)
  Receive Date: 20120412
  Receipt Date: 20140606
  Transmission Date: 20141212
  Serious: No
  Sender: FDA-Public Use
  Company Number: US-ASTRAZENECA-1999AU11159

PATIENT
  Age: 80 Year
  Sex: Male
  Weight: 97.5 kg

DRUGS (14)
  1. NEXIUM [Suspect]
     Indication: GASTROOESOPHAGEAL REFLUX DISEASE
     Route: 048
  2. NEXIUM [Suspect]
     Indication: GASTROOESOPHAGEAL REFLUX DISEASE
     Route: 048
  3. NEXIUM [Suspect]
     Indication: GASTROOESOPHAGEAL REFLUX DISEASE
     Route: 048
     Dates: start: 2009, end: 201305
  4. NEXIUM [Suspect]
     Indication: GASTROOESOPHAGEAL REFLUX DISEASE
     Route: 048
     Dates: start: 2009, end: 201305
  5. PRILOSEC [Suspect]
     Indication: OESOPHAGEAL DILATATION
     Route: 048
     Dates: start: 19990711
  6. CRESTOR [Suspect]
     Route: 048
  7. CRESTOR [Suspect]
     Route: 048
     Dates: start: 2010
  8. MONOPRIL [Concomitant]
  9. ZOCOR [Concomitant]
  10. ZENECAR [Concomitant]
     Indication: BLOOD PRESSURE ABNORMAL
  11. COREG [Concomitant]
     Indication: BLOOD PRESSURE ABNORMAL
  12. BENECAR [Concomitant]
     Indication: HYPERTENSION
  13. CLOPRIDOGREL [Concomitant]
  14. PANTOPRAZOLE [Concomitant]

REACTIONS (2)
  - Flatulence [Unknown]
  - Drug prescribing error [Unknown]
